FAERS Safety Report 11470011 (Version 2)
Quarter: 2015Q3

REPORT INFORMATION
  Report Type: Spontaneous
  Country: US (occurrence: US)
  Receive Date: 20150903
  Receipt Date: 20150903
  Transmission Date: 20151125
  Serious: Yes (Other)
  Sender: FDA-Public Use
  Company Number: US-ELI_LILLY_AND_COMPANY-US201111001231

PATIENT
  Age: 51 Year
  Sex: Male

DRUGS (14)
  1. AMITRIPTYLINE [Concomitant]
     Active Substance: AMITRIPTYLINE
  2. HYDROCODONE [Concomitant]
     Active Substance: HYDROCODONE
  3. LEVETIRACETAM. [Concomitant]
     Active Substance: LEVETIRACETAM
  4. VIRAMUNE [Concomitant]
     Active Substance: NEVIRAPINE
  5. GABAPENTIN. [Concomitant]
     Active Substance: GABAPENTIN
  6. DIAZEPAM. [Concomitant]
     Active Substance: DIAZEPAM
  7. CYMBALTA [Suspect]
     Active Substance: DULOXETINE HYDROCHLORIDE
     Dosage: 60 MG, QD
     Dates: start: 20110926
  8. NORVIR [Concomitant]
     Active Substance: RITONAVIR
  9. REYATAZ [Concomitant]
     Active Substance: ATAZANAVIR SULFATE
  10. CYMBALTA [Suspect]
     Active Substance: DULOXETINE HYDROCHLORIDE
     Indication: DEPRESSION
     Dosage: 30 MG, QD
     Dates: start: 20110912, end: 20110925
  11. TRUVADA [Concomitant]
     Active Substance: EMTRICITABINE\TENOFOVIR DISOPROXIL FUMARATE
  12. FENOFIBRATE. [Concomitant]
     Active Substance: FENOFIBRATE
  13. DICLOFENAC [Concomitant]
     Active Substance: DICLOFENAC
  14. LIPITOR [Concomitant]
     Active Substance: ATORVASTATIN CALCIUM

REACTIONS (4)
  - Dizziness [Recovered/Resolved]
  - Insomnia [Unknown]
  - Neck pain [Unknown]
  - Suicidal ideation [Recovered/Resolved]

NARRATIVE: CASE EVENT DATE: 20110912
